FAERS Safety Report 6527940-1 (Version None)
Quarter: 2010Q1

REPORT INFORMATION
  Report Type: 
  Country: None (occurrence: None)
  Receive Date: 20100106
  Receipt Date: 20100104
  Transmission Date: 20100710
  Serious: Yes (Other)
  Sender: FDA-Public Use
  Company Number: CN-BAYER-201010079GPV

PATIENT
  Age: 10 Year
  Sex: Male

DRUGS (1)
  1. ASPIRIN [Suspect]
     Indication: CARDIAC OPERATION
     Dosage: TOTAL DAILY DOSE: 1 DF
     Route: 048
     Dates: start: 20091101

REACTIONS (1)
  - CONVULSION [None]
